FAERS Safety Report 17908693 (Version 1)
Quarter: 2020Q2

REPORT INFORMATION
  Report Type: Spontaneous
  Country: NL (occurrence: NL)
  Receive Date: 20200617
  Receipt Date: 20200617
  Transmission Date: 20200714
  Serious: Yes (Other)
  Sender: FDA-Public Use
  Company Number: NL-OTSUKA-2020_014557

PATIENT
  Age: 55 Year
  Sex: Male

DRUGS (2)
  1. ABILIFY [Suspect]
     Active Substance: ARIPIPRAZOLE
     Indication: TRAUMATIC INTRACRANIAL HAEMORRHAGE
     Dosage: UNK
     Route: 065
  2. ARIPIPRAZOLE. [Suspect]
     Active Substance: ARIPIPRAZOLE
     Indication: TRAUMATIC INTRACRANIAL HAEMORRHAGE
     Dosage: UNK
     Route: 065

REACTIONS (11)
  - Libido disorder [Recovered/Resolved]
  - Suicidal ideation [Recovered/Resolved]
  - Drug ineffective [Unknown]
  - Gastrointestinal sounds abnormal [Recovered/Resolved]
  - Social problem [Unknown]
  - Product substitution issue [Unknown]
  - Sleep disorder [Recovered/Resolved]
  - Muscle tightness [Recovered/Resolved]
  - Product use in unapproved indication [Unknown]
  - Confusional state [Recovered/Resolved]
  - Fatigue [Recovered/Resolved]
